FAERS Safety Report 22977556 (Version 2)
Quarter: 2023Q4

REPORT INFORMATION
  Report Type: Report from Study
  Country: CA (occurrence: CA)
  Receive Date: 20230925
  Receipt Date: 20231220
  Transmission Date: 20240109
  Serious: Yes (Hospitalization, Other)
  Sender: FDA-Public Use
  Company Number: CA-JNJFOC-20230940586

PATIENT
  Age: 54 Year
  Sex: Male
  Weight: 79 kg

DRUGS (1)
  1. REMICADE [Suspect]
     Active Substance: INFLIXIMAB
     Indication: Ankylosing spondylitis
     Dosage: V1: BATCH NUMBER:23A032 EXPIRY: 28-FEB-2026
     Route: 041
     Dates: start: 20080115

REACTIONS (5)
  - Viral pericarditis [Recovering/Resolving]
  - Gallbladder enlargement [Not Recovered/Not Resolved]
  - Oropharyngeal pain [Recovered/Resolved]
  - Cataract [Not Recovered/Not Resolved]
  - Hypertension [Recovered/Resolved]

NARRATIVE: CASE EVENT DATE: 20230904
